FAERS Safety Report 22033764 (Version 2)
Quarter: 2023Q1

REPORT INFORMATION
  Report Type: Report from Study
  Country: JP (occurrence: JP)
  Receive Date: 20230224
  Receipt Date: 20230330
  Transmission Date: 20230418
  Serious: Yes (Hospitalization, Other)
  Sender: FDA-Public Use
  Company Number: JP-BAXTER-2023BAX013687

PATIENT
  Age: 28 Year
  Sex: Male

DRUGS (4)
  1. CYCLOPHOSPHAMIDE [Suspect]
     Active Substance: CYCLOPHOSPHAMIDE
     Dosage: 40 MG/KG/DAY
     Route: 065
     Dates: start: 20221005, end: 20221005
  2. RABEPRAZOLE SODIUM [Concomitant]
     Active Substance: RABEPRAZOLE SODIUM
     Indication: Gastritis prophylaxis
     Dosage: 10 MG/DAY
     Route: 048
     Dates: start: 20221103
  3. ASPIRIN [Concomitant]
     Active Substance: ASPIRIN
     Indication: Leukocytosis
     Dosage: 100 MG/DAY
     Route: 048
     Dates: start: 20221013
  4. TACROLIMUS [Concomitant]
     Active Substance: TACROLIMUS
     Indication: Liver transplant rejection
     Dosage: 5 MG/DAY
     Route: 048
     Dates: start: 20230210

REACTIONS (1)
  - Cholangitis [Recovered/Resolved]

NARRATIVE: CASE EVENT DATE: 20230215
